FAERS Safety Report 6261942-8 (Version None)
Quarter: 2009Q3

REPORT INFORMATION
  Report Type: 
  Country: None (occurrence: None)
  Receive Date: 20090709
  Receipt Date: 20090304
  Transmission Date: 20100115
  Serious: Yes (Death)
  Sender: FDA-Public Use
  Company Number: B0582815A

PATIENT
  Age: 73 Year
  Sex: Female
  Weight: 97 kg

DRUGS (8)
  1. OMACOR [Suspect]
     Dosage: 1000MG PER DAY
     Route: 048
     Dates: start: 20050210
  2. ASPIRIN [Concomitant]
  3. CLOPIDOGREL [Concomitant]
  4. HEPARIN [Concomitant]
  5. DIURETICS [Concomitant]
  6. ACE INHIBITOR [Concomitant]
  7. INSULIN [Concomitant]
  8. STATINS [Concomitant]

REACTIONS (1)
  - CARDIAC FAILURE ACUTE [None]
